FAERS Safety Report 8063416-0 (Version None)
Quarter: 2012Q1

REPORT INFORMATION
  Report Type: 
  Country: None (occurrence: None)
  Receive Date: 20120123
  Receipt Date: 20120117
  Transmission Date: 20120608
  Serious: No
  Sender: FDA-Public Use
  Company Number: US-PFIZER INC-2011312181

PATIENT
  Sex: Female
  Weight: 58.05 kg

DRUGS (7)
  1. KLOR-CON [Concomitant]
     Dosage: 10 MG, UNK
  2. DIOVAN [Concomitant]
     Indication: HYPERTENSION
     Dosage: UNK
  3. LISINOPRIL [Concomitant]
     Indication: HYPERTENSION
     Dosage: 40 MG, UNK
  4. HYDROCHLOROTHIAZIDE [Concomitant]
     Indication: HYPERTENSION
     Dosage: 25 MG, UNK
  5. LIPITOR [Suspect]
     Indication: BLOOD CHOLESTEROL INCREASED
     Dosage: 10MG ONCE A DAY
     Route: 048
     Dates: start: 20060101
  6. LIPITOR [Suspect]
     Indication: HYPERLIPIDAEMIA
  7. OSCAL [Concomitant]
     Dosage: UNK

REACTIONS (3)
  - DRY THROAT [None]
  - COUGH [None]
  - GASTRIC DISORDER [None]
